FAERS Safety Report 19042635 (Version 5)
Quarter: 2021Q4

REPORT INFORMATION
  Report Type: Report from Study
  Country: US (occurrence: US)
  Receive Date: 20210322
  Receipt Date: 20211026
  Transmission Date: 20220303
  Serious: Yes (Other)
  Sender: FDA-Public Use
  Company Number: US-NOVARTISPH-NVSC2021US063611

PATIENT
  Sex: Female

DRUGS (4)
  1. TAFINLAR [Suspect]
     Active Substance: DABRAFENIB MESYLATE
     Indication: Product used for unknown indication
     Dosage: UNK
     Route: 065
  2. TAFINLAR [Suspect]
     Active Substance: DABRAFENIB MESYLATE
     Dosage: 75 MG, QD (4 PILLS DAILY)
     Route: 065
  3. MEKINIST [Suspect]
     Active Substance: TRAMETINIB DIMETHYL SULFOXIDE
     Indication: Neoplasm malignant
     Dosage: UNK
     Route: 065
  4. MEKINIST [Suspect]
     Active Substance: TRAMETINIB DIMETHYL SULFOXIDE
     Dosage: 2 MG, QD
     Route: 065

REACTIONS (12)
  - Motor neurone disease [Unknown]
  - Choking [Unknown]
  - Speech disorder [Unknown]
  - Cough [Unknown]
  - Dysarthria [Unknown]
  - Gait disturbance [Unknown]
  - Dysphagia [Unknown]
  - Swelling [Unknown]
  - Salivary hypersecretion [Unknown]
  - Mastication disorder [Unknown]
  - Feeding disorder [Unknown]
  - Erythema [Unknown]
